FAERS Safety Report 13366638 (Version 2)
Quarter: 2017Q2

REPORT INFORMATION
  Report Type: Spontaneous
  Country: US (occurrence: US)
  Receive Date: 20170323
  Receipt Date: 20170620
  Transmission Date: 20170830
  Serious: Yes (Hospitalization)
  Sender: FDA-Public Use
  Company Number: US-MAYNE PHARMA-2017MYN000439

PATIENT

DRUGS (1)
  1. LEENA [Suspect]
     Active Substance: ETHINYL ESTRADIOL\NORETHINDRONE
     Indication: CONTRACEPTION

REACTIONS (15)
  - Psoriasis [Unknown]
  - Bruxism [Unknown]
  - Bronchospasm [Unknown]
  - Dyspnoea [Unknown]
  - Tremor [Unknown]
  - Decreased appetite [Unknown]
  - Myocardial infarction [Unknown]
  - Panic attack [Unknown]
  - Product formulation issue [Unknown]
  - Diarrhoea [Unknown]
  - Salivary hypersecretion [Unknown]
  - Libido increased [Unknown]
  - Hospitalisation [Unknown]
  - Hyperhidrosis [Unknown]
  - Product substitution issue [Unknown]
